FAERS Safety Report 6303735-9 (Version None)
Quarter: 2009Q3

REPORT INFORMATION
  Report Type: 
  Country: None (occurrence: None)
  Receive Date: 20090807
  Receipt Date: 20090807
  Transmission Date: 20100115
  Serious: No
  Sender: FDA-Public Use
  Company Number: None

PATIENT
  Age: 62 Year
  Sex: Female
  Weight: 54.4316 kg

DRUGS (1)
  1. ZICAM GEL MATRIXX [Suspect]
     Indication: NASOPHARYNGITIS
     Dosage: GEL IN EACH NOSTRIL 3/4 TIMES WEEK NASAL
     Route: 045
     Dates: start: 20050715, end: 20050718

REACTIONS (4)
  - AGEUSIA [None]
  - ANOSMIA [None]
  - ANXIETY [None]
  - DEPRESSION [None]
